FAERS Safety Report 17037323 (Version 2)
Quarter: 2019Q4

REPORT INFORMATION
  Report Type: Spontaneous
  Country: US (occurrence: US)
  Receive Date: 20191115
  Receipt Date: 20191205
  Transmission Date: 20200122
  Serious: No
  Sender: FDA-Public Use
  Company Number: US-PFIZER INC-2019478219

PATIENT
  Age: 81 Year

DRUGS (2)
  1. RELPAX [Suspect]
     Active Substance: ELETRIPTAN HYDROBROMIDE
     Indication: HEADACHE
     Dosage: 0.5 DF, UNK (CAN REPEAT IN 2 HRS)
  2. RELPAX [Suspect]
     Active Substance: ELETRIPTAN HYDROBROMIDE
     Dosage: 0.5 MG, AS NEEDED

REACTIONS (3)
  - Nasopharyngitis [Unknown]
  - Product use issue [Unknown]
  - Off label use [Unknown]
